FAERS Safety Report 25163836 (Version 1)
Quarter: 2025Q2

REPORT INFORMATION
  Report Type: Spontaneous
  Country: CA (occurrence: CA)
  Receive Date: 20250405
  Receipt Date: 20250405
  Transmission Date: 20250717
  Serious: Yes (Other)
  Sender: CELLTRION
  Company Number: CA-PFIZER INC-202500014431

PATIENT

DRUGS (20)
  1. INFLECTRA [Suspect]
     Active Substance: INFLIXIMAB-DYYB
     Indication: Colitis ulcerative
     Route: 042
     Dates: start: 20221220, end: 20230927
  2. INFLECTRA [Suspect]
     Active Substance: INFLIXIMAB-DYYB
     Route: 042
     Dates: start: 20231011, end: 20231011
  3. INFLECTRA [Suspect]
     Active Substance: INFLIXIMAB-DYYB
     Route: 042
     Dates: start: 20231123
  4. INFLECTRA [Suspect]
     Active Substance: INFLIXIMAB-DYYB
     Route: 042
     Dates: start: 20241204
  5. INFLECTRA [Suspect]
     Active Substance: INFLIXIMAB-DYYB
     Route: 042
     Dates: start: 20250116
  6. INFLECTRA [Suspect]
     Active Substance: INFLIXIMAB-DYYB
     Route: 042
     Dates: start: 20250227
  7. ADMELOG [Concomitant]
     Active Substance: INSULIN LISPRO
  8. CITALOPRAM [Concomitant]
     Active Substance: CITALOPRAM
  9. CAL D [CALCIUM CARBONATE] [Concomitant]
  10. BUDESONIDE [Concomitant]
     Active Substance: BUDESONIDE
  11. DOXYLAMINE [Concomitant]
     Active Substance: DOXYLAMINE
  12. ENTOCORT [Concomitant]
     Active Substance: BUDESONIDE
  13. FERROUS SULFATE [Concomitant]
     Active Substance: FERROUS SULFATE
  14. HUMULIN N [Concomitant]
     Active Substance: INSULIN HUMAN
  15. PANTOPRAZOLE SODIUM [Concomitant]
     Active Substance: PANTOPRAZOLE SODIUM
  16. PREDNISONE [Concomitant]
     Active Substance: PREDNISONE
  17. PROCTOL [Concomitant]
  18. MESALAMINE [Concomitant]
     Active Substance: MESALAMINE
  19. TYLENOL [Concomitant]
     Active Substance: ACETAMINOPHEN
  20. ANGELIQ [Concomitant]
     Active Substance: DROSPIRENONE\ESTRADIOL

REACTIONS (5)
  - Tooth extraction [Unknown]
  - Procedural pain [Unknown]
  - Spinal pain [Not Recovered/Not Resolved]
  - Arthralgia [Not Recovered/Not Resolved]
  - Dizziness [Not Recovered/Not Resolved]

NARRATIVE: CASE EVENT DATE: 20241201
